FAERS Safety Report 12304410 (Version 1)
Quarter: 2016Q2

REPORT INFORMATION
  Report Type: Spontaneous
  Country: GB (occurrence: GB)
  Receive Date: 20160426
  Receipt Date: 20160426
  Transmission Date: 20160815
  Serious: Yes (Other)
  Sender: FDA-Public Use
  Company Number: GB-ACCORD-039914

PATIENT
  Age: 76 Year
  Sex: Female
  Weight: 79.37 kg

DRUGS (2)
  1. AMITRIPTYLINE [Suspect]
     Active Substance: AMITRIPTYLINE
     Indication: ANALGESIC THERAPY
     Route: 048
     Dates: start: 20151120, end: 20160222
  2. NOVORAPID [Concomitant]
     Active Substance: INSULIN ASPART
     Indication: DIABETES MELLITUS

REACTIONS (7)
  - Malaise [Unknown]
  - Dry mouth [Unknown]
  - Muscle spasms [Recovered/Resolved]
  - Alopecia [Recovered/Resolved]
  - Teeth brittle [Unknown]
  - Osteoporosis [Unknown]
  - Off label use [Unknown]

NARRATIVE: CASE EVENT DATE: 20151127
